FAERS Safety Report 20861928 (Version 1)
Quarter: 2022Q2

REPORT INFORMATION
  Report Type: Spontaneous
  Country: US (occurrence: None)
  Receive Date: 20220521
  Receipt Date: 20220521
  Transmission Date: 20220720
  Serious: Yes (Other)
  Sender: FDA-Public Use
  Company Number: None

PATIENT
  Age: 51 Year
  Sex: Male
  Weight: 117 kg

DRUGS (3)
  1. WIXELA INHUB [Suspect]
     Active Substance: FLUTICASONE PROPIONATE\SALMETEROL XINAFOATE
     Indication: Asthma
     Dosage: OTHER QUANTITY : 1 INHALATION(S);?FREQUENCY : TWICE A DAY;?
     Route: 055
     Dates: start: 20200302, end: 20220225
  2. SEREVANT [Concomitant]
  3. MONTELUKAST (ORAL) [Concomitant]

REACTIONS (3)
  - Productive cough [None]
  - Pulmonary congestion [None]
  - Pulmonary function test decreased [None]

NARRATIVE: CASE EVENT DATE: 20220215
